FAERS Safety Report 5562479-1 (Version None)
Quarter: 2007Q4

REPORT INFORMATION
  Report Type: 
  Country: None (occurrence: None)
  Receive Date: 20071215
  Receipt Date: 20070102
  Transmission Date: 20080405
  Serious: No
  Sender: FDA-Public Use
  Company Number: US-AMGEN-US195253

PATIENT
  Sex: Male

DRUGS (16)
  1. ENBREL [Suspect]
     Indication: RHEUMATOID ARTHRITIS
     Route: 058
     Dates: start: 20021201
  2. METHOTREXATE [Concomitant]
     Dates: start: 20050101
  3. TYLENOL (CAPLET) [Concomitant]
     Route: 065
  4. OXYCONTIN [Concomitant]
     Route: 065
  5. FOLIC ACID [Concomitant]
     Route: 065
  6. VITAMIN CAP [Concomitant]
     Route: 065
  7. TESTOSTERONE [Concomitant]
     Route: 065
  8. CALTRATE [Concomitant]
     Route: 065
  9. BONIVA [Concomitant]
     Route: 065
  10. VYTORIN [Concomitant]
     Route: 065
  11. OXYCODONE HCL [Concomitant]
     Route: 065
  12. CLARITIN [Concomitant]
     Route: 065
  13. CIALIS [Concomitant]
     Route: 065
  14. FORTEO [Concomitant]
     Route: 065
  15. PEPCID [Concomitant]
     Route: 065
  16. LEXAPRO [Concomitant]
     Route: 065

REACTIONS (2)
  - ERYTHEMA [None]
  - PAIN IN EXTREMITY [None]
